FAERS Safety Report 6727616-1 (Version None)
Quarter: 2010Q2

REPORT INFORMATION
  Report Type: 
  Country: None (occurrence: None)
  Receive Date: 20100517
  Receipt Date: 20100319
  Transmission Date: 20101027
  Serious: Yes (Disabling)
  Sender: FDA-Public Use
  Company Number: US-BAYER-201017102NA

PATIENT
  Age: 76 Year
  Sex: Female

DRUGS (1)
  1. SOTALOL HCL [Suspect]
     Indication: ATRIAL FIBRILLATION
     Route: 065
     Dates: end: 20100201

REACTIONS (2)
  - ABNORMAL SENSATION IN EYE [None]
  - VISUAL ACUITY REDUCED [None]
